FAERS Safety Report 8479625-2 (Version None)
Quarter: 2012Q2

REPORT INFORMATION
  Report Type: 
  Country: None (occurrence: None)
  Receive Date: 20120629
  Receipt Date: 20120628
  Transmission Date: 20120825
  Serious: No
  Sender: FDA-Public Use
  Company Number: US-PFIZER INC-2012156307

PATIENT
  Sex: Female

DRUGS (2)
  1. ZOLOFT [Suspect]
     Indication: DEPRESSION
     Dosage: HALF TABLET OF 50 MG DAILY
     Route: 048
     Dates: start: 20120613, end: 20120601
  2. ZOLOFT [Suspect]
     Indication: BIPOLAR DISORDER

REACTIONS (1)
  - ANXIETY [None]
